FAERS Safety Report 17236508 (Version 17)
Quarter: 2025Q2

REPORT INFORMATION
  Report Type: Spontaneous
  Country: US (occurrence: US)
  Receive Date: 20200106
  Receipt Date: 20250425
  Transmission Date: 20250716
  Serious: Yes (Hospitalization, Disabling, Other)
  Sender: VERTEX
  Company Number: US-VERTEX PHARMACEUTICALS-2019-013885

PATIENT
  Age: 21 Year
  Sex: Female
  Weight: 62 kg

DRUGS (49)
  1. TRIKAFTA [Suspect]
     Active Substance: ELEXACAFTOR\IVACAFTOR\TEZACAFTOR
     Indication: Cystic fibrosis
     Dosage: UNK BID
     Route: 048
     Dates: start: 20191109, end: 201911
  2. TRIKAFTA [Suspect]
     Active Substance: ELEXACAFTOR\IVACAFTOR\TEZACAFTOR
     Route: 048
     Dates: start: 202001, end: 202001
  3. TRIKAFTA [Suspect]
     Active Substance: ELEXACAFTOR\IVACAFTOR\TEZACAFTOR
     Route: 048
  4. TRIKAFTA [Suspect]
     Active Substance: ELEXACAFTOR\IVACAFTOR\TEZACAFTOR
     Route: 048
     Dates: start: 20200526, end: 20200528
  5. TRIKAFTA [Suspect]
     Active Substance: ELEXACAFTOR\IVACAFTOR\TEZACAFTOR
     Route: 048
  6. TRIKAFTA [Suspect]
     Active Substance: ELEXACAFTOR\IVACAFTOR\TEZACAFTOR
     Dosage: 2 ORANGE TABS AM AND 1 BLUE TAB PM
     Route: 048
     Dates: start: 20240522
  7. ADDERALL [Concomitant]
     Active Substance: AMPHETAMINE ASPARTATE\AMPHETAMINE SULFATE\DEXTROAMPHETAMINE SACCHARATE\DEXTROAMPHETAMINE SULFATE
  8. BUPRENORPHINE [Concomitant]
     Active Substance: BUPRENORPHINE
  9. CLONAZEPAM [Concomitant]
     Active Substance: CLONAZEPAM
  10. LITHIUM CARBONATE [Concomitant]
     Active Substance: LITHIUM CARBONATE
  11. LUNESTA [Concomitant]
     Active Substance: ESZOPICLONE
  12. MELATONIN [Concomitant]
     Active Substance: MELATONIN
     Indication: Insomnia
  13. ZOLOFT [Concomitant]
     Active Substance: SERTRALINE HYDROCHLORIDE
  14. TYLENOL [Concomitant]
     Active Substance: ACETAMINOPHEN
     Indication: Jejunostomy
  15. ACETYLCYSTEINE [Concomitant]
     Active Substance: ACETYLCYSTEINE
     Indication: Jejunostomy
  16. AMITRIPTYLINE [Concomitant]
     Active Substance: AMITRIPTYLINE
  17. AMPHETAMINE [Concomitant]
     Active Substance: AMPHETAMINE
  18. BUDESONIDE [Concomitant]
     Active Substance: BUDESONIDE
     Dosage: 0.5 MG/2ML, 2ML NEBULIZED INHALATION
  19. COLISTIN [Concomitant]
     Active Substance: COLISTIN
  20. MARINOL [Concomitant]
     Active Substance: DRONABINOL
  21. ESZOPICLONE [Concomitant]
     Active Substance: ESZOPICLONE
     Indication: Jejunostomy
  22. ESZOPICLONE [Concomitant]
     Active Substance: ESZOPICLONE
     Indication: Insomnia
  23. XHANCE [Concomitant]
     Active Substance: FLUTICASONE PROPIONATE
     Dosage: 1 SPRAY EACH NOSTRIL 2 TIMES DAY
  24. GLUCAGON [Concomitant]
     Active Substance: GLUCAGON
     Dosage: 3MG NASAL ONCE A DAY
  25. HEPARIN SODIUM [Concomitant]
     Active Substance: HEPARIN SODIUM
  26. UNSPECIFIED INGREDIENT [Concomitant]
     Active Substance: UNSPECIFIED INGREDIENT
  27. HYOSCYAMINE [Concomitant]
     Active Substance: HYOSCYAMINE
     Indication: Oesophageal spasm
     Dosage: 1 TAB SUBLINGUAL 3 TIMES A DAY
     Route: 048
  28. LEVALBUTEROL [Concomitant]
     Active Substance: LEVALBUTEROL
     Dosage: 0.63MG/3ML
  29. LITHIUM [Concomitant]
     Active Substance: LITHIUM
     Dosage: 1 CAP ONCE A DAY
  30. SINGULAIR [Concomitant]
     Active Substance: MONTELUKAST SODIUM
     Dosage: 1 TAB 2 TIMES A DAY
     Route: 048
  31. NALOXEGOL [Concomitant]
     Active Substance: NALOXEGOL
     Indication: Constipation
     Route: 048
  32. NALOXONE [Concomitant]
     Active Substance: NALOXONE
  33. ONDANSETRON [Concomitant]
     Active Substance: ONDANSETRON
     Indication: Nausea
  34. ONDANSETRON [Concomitant]
     Active Substance: ONDANSETRON
     Indication: Vomiting
  35. OXYCODONE [Concomitant]
     Active Substance: OXYCODONE
     Indication: Pain
  36. PANCREAZE [Concomitant]
     Active Substance: PANCRELIPASE AMYLASE\PANCRELIPASE LIPASE\PANCRELIPASE PROTEASE
     Dosage: 5CAPS 3TIMES A DAY
  37. PANTOPRAZOLE [Concomitant]
     Active Substance: PANTOPRAZOLE
     Dosage: 40MG  2 TIMES A DAY FOR 30 DAYS
     Route: 042
  38. MIRALAX [Concomitant]
     Active Substance: POLYETHYLENE GLYCOL 3350
     Dosage: 17GM ONCE A DAY
     Route: 048
  39. LYRICA [Concomitant]
     Active Substance: PREGABALIN
     Indication: Fatigue
     Dosage: 2 TIMES A DAY
  40. PREDNISONE [Concomitant]
     Active Substance: PREDNISONE
     Dosage: 1 TAB BY MOUTH
     Route: 048
  41. RIFAXIMIN [Concomitant]
     Active Substance: RIFAXIMIN
     Dosage: 1 TAB TWO TIMES A DAY
     Route: 048
  42. SERTRALINE [Concomitant]
     Active Substance: SERTRALINE HYDROCHLORIDE
     Dosage: 1 TAB EVERY MORNING
     Route: 048
  43. SODIUM CHLORIDE [Concomitant]
     Active Substance: SODIUM CHLORIDE
     Indication: Nasal congestion
     Dosage: 2 TIMES A DAY
  44. SODIUM CHLORIDE [Concomitant]
     Active Substance: SODIUM CHLORIDE
  45. CARAFATE [Concomitant]
     Active Substance: SUCRALFATE
  46. SUMATRIPTAN [Concomitant]
     Active Substance: SUMATRIPTAN
     Indication: Migraine
     Dosage: 1 TAB ONCE A DAY
     Route: 048
  47. URSODIOL [Concomitant]
     Active Substance: URSODIOL
     Indication: Jejunostomy
     Dosage: 1 CAP TWO TIMES A DAY
     Route: 048
  48. ZOFRAN [Concomitant]
     Active Substance: ONDANSETRON HYDROCHLORIDE
     Indication: Nausea
  49. SENNA [Concomitant]
     Active Substance: SENNOSIDES

REACTIONS (35)
  - Seizure [Unknown]
  - Transient ischaemic attack [Unknown]
  - Muscular weakness [Recovering/Resolving]
  - Confusional state [Unknown]
  - Blindness unilateral [Recovered/Resolved]
  - Muscle twitching [Recovered/Resolved]
  - Coordination abnormal [Recovered/Resolved]
  - Asthenia [Unknown]
  - Gait disturbance [Unknown]
  - Cerebrovascular accident [Unknown]
  - Muscle disorder [Recovering/Resolving]
  - Fine motor skill dysfunction [Recovered/Resolved]
  - Hypoaesthesia [Recovered/Resolved]
  - Hemiparesis [Unknown]
  - Dysarthria [Recovered/Resolved]
  - Tremor [Recovered/Resolved]
  - Eye movement disorder [Recovered/Resolved]
  - Migraine [Recovered/Resolved]
  - Blood creatine phosphokinase increased [Unknown]
  - Headache [Unknown]
  - Rash [Not Recovered/Not Resolved]
  - Gastrointestinal disorder [Recovering/Resolving]
  - Memory impairment [Unknown]
  - Secretion discharge [Unknown]
  - Muscle spasms [Not Recovered/Not Resolved]
  - Faeces discoloured [Not Recovered/Not Resolved]
  - Chromaturia [Not Recovered/Not Resolved]
  - Vision blurred [Not Recovered/Not Resolved]
  - Mental disorder [Unknown]
  - Dizziness [Not Recovered/Not Resolved]
  - Blood pressure increased [Unknown]
  - Upper respiratory tract infection [Not Recovered/Not Resolved]
  - Brain fog [Recovered/Resolved]
  - Dyspnoea [Recovered/Resolved]
  - Infective pulmonary exacerbation of cystic fibrosis [Recovered/Resolved]

NARRATIVE: CASE EVENT DATE: 20191101
